FAERS Safety Report 16475607 (Version 1)
Quarter: 2019Q2

REPORT INFORMATION
  Report Type: Report from Study
  Country: US (occurrence: US)
  Receive Date: 20190625
  Receipt Date: 20190625
  Transmission Date: 20190711
  Serious: Yes (Other)
  Sender: FDA-Public Use
  Company Number: US-JNJFOC-20190606357

PATIENT
  Age: 89 Year
  Sex: Male

DRUGS (8)
  1. CENTRUM SPECIALIST [Concomitant]
  2. ALLOPURINOL. [Concomitant]
     Active Substance: ALLOPURINOL
  3. CLONIDINE HCL [Concomitant]
     Active Substance: CLONIDINE HYDROCHLORIDE
  4. TRIAMTERENE. [Concomitant]
     Active Substance: TRIAMTERENE
  5. ZETIA [Concomitant]
     Active Substance: EZETIMIBE
  6. TYLENOL [Concomitant]
     Active Substance: ACETAMINOPHEN
  7. LUTEIN [Concomitant]
     Active Substance: LUTEIN
  8. IMBRUVICA [Suspect]
     Active Substance: IBRUTINIB
     Indication: B-CELL LYMPHOMA
     Route: 048
     Dates: start: 2019

REACTIONS (2)
  - Haemothorax [Unknown]
  - Contusion [Not Recovered/Not Resolved]

NARRATIVE: CASE EVENT DATE: 20190501
